FAERS Safety Report 4529396-7 (Version None)
Quarter: 2004Q4

REPORT INFORMATION
  Report Type: 
  Country: None (occurrence: None)
  Receive Date: 20041215
  Receipt Date: 20041215
  Transmission Date: 20050328
  Serious: Yes (Death)
  Sender: FDA-Public Use
  Company Number: None

PATIENT
  Age: 59 Year
  Sex: Male
  Weight: 71.2147 kg

DRUGS (4)
  1. CRESTOR [Suspect]
     Indication: LIPIDS INCREASED
     Dosage: 10 MG PO QD
     Route: 048
     Dates: start: 20040501, end: 20040622
  2. NORTRIPTYLINE HCL [Concomitant]
  3. LASIX [Concomitant]
  4. PAXIL [Concomitant]

REACTIONS (10)
  - ANOREXIA [None]
  - ASTHENIA [None]
  - BRAIN STEM HAEMORRHAGE [None]
  - CEREBRAL HAEMORRHAGE [None]
  - DEPRESSION [None]
  - EXERCISE LACK OF [None]
  - INSOMNIA [None]
  - PAIN [None]
  - RETCHING [None]
  - UPPER RESPIRATORY TRACT INFECTION [None]
